FAERS Safety Report 25850380 (Version 1)
Quarter: 2025Q3

REPORT INFORMATION
  Report Type: Report from Study
  Country: US (occurrence: US)
  Receive Date: 20250926
  Receipt Date: 20250926
  Transmission Date: 20251020
  Serious: No
  Sender: BIOGEN
  Company Number: US-BIOGEN-2025BI01324628

PATIENT
  Sex: Male

DRUGS (1)
  1. ZURZUVAE [Suspect]
     Active Substance: ZURANOLONE
     Indication: Perinatal depression
     Dosage: TAKE 2 CAPSULES (50 MG) DAILY AT BEDTIME WITH A FATTY MEAL OR FOOD FOR 14 DAYS.
     Route: 050

REACTIONS (2)
  - Exposure via breast milk [Unknown]
  - Somnolence neonatal [Unknown]
